FAERS Safety Report 21459766 (Version 1)
Quarter: 2022Q4

REPORT INFORMATION
  Report Type: Spontaneous
  Country: US (occurrence: US)
  Receive Date: 20221014
  Receipt Date: 20221014
  Transmission Date: 20230112
  Serious: No
  Sender: FDA-Public Use
  Company Number: US-TAKEDA-2022TUS073983

PATIENT

DRUGS (1)
  1. DEXILANT [Suspect]
     Active Substance: DEXLANSOPRAZOLE
     Indication: Barrett^s oesophagus
     Dosage: UNK
     Route: 065

REACTIONS (2)
  - Product use in unapproved indication [Unknown]
  - No adverse event [Unknown]
